FAERS Safety Report 9527970 (Version 2)
Quarter: 2013Q3

REPORT INFORMATION
  Report Type: Spontaneous
  Country: JP (occurrence: JP)
  Receive Date: 20130917
  Receipt Date: 20130917
  Transmission Date: 20140515
  Serious: Yes (Death)
  Sender: FDA-Public Use
  Company Number: JP-JNJFOC-20130810624

PATIENT
  Sex: 0

DRUGS (2)
  1. DUROTEP MT [Suspect]
     Indication: CANCER PAIN
     Route: 062
     Dates: start: 20130818, end: 20130820
  2. DUROTEP MT [Suspect]
     Indication: ANALGESIC THERAPY
     Route: 062
     Dates: start: 20130818, end: 20130820

REACTIONS (2)
  - Malignant neoplasm progression [Fatal]
  - Restlessness [Unknown]
